FAERS Safety Report 24669399 (Version 1)
Quarter: 2024Q4

REPORT INFORMATION
  Report Type: Spontaneous
  Country: US (occurrence: None)
  Receive Date: 20241122
  Receipt Date: 20241122
  Transmission Date: 20250114
  Serious: Yes (Hospitalization)
  Sender: Public
  Company Number: None

PATIENT
  Age: 24 Year
  Sex: Female
  Weight: 64.6 kg

DRUGS (1)
  1. HUMIRA [Suspect]
     Active Substance: ADALIMUMAB
     Indication: Psoriasis
     Dosage: OTHER FREQUENCY : DAY 1;?
     Route: 058
     Dates: start: 20241011, end: 20241014

REACTIONS (3)
  - Immune thrombocytopenia [None]
  - Rash [None]
  - Bleeding time prolonged [None]

NARRATIVE: CASE EVENT DATE: 20241020
